FAERS Safety Report 7420969-0 (Version None)
Quarter: 2011Q2

REPORT INFORMATION
  Report Type: 
  Country: None (occurrence: None)
  Receive Date: 20110418
  Receipt Date: 20110408
  Transmission Date: 20111010
  Serious: Yes (Death, Hospitalization)
  Sender: FDA-Public Use
  Company Number: US-VIROPHARMA INCORPORATED-20110408CINRY1929

PATIENT
  Sex: Male

DRUGS (1)
  1. CINRYZE [Suspect]
     Indication: HEREDITARY ANGIOEDEMA
     Dosage: UNKNOWN
     Dates: start: 20091215

REACTIONS (4)
  - MYOCARDIAL INFARCTION [None]
  - INTESTINAL ISCHAEMIA [None]
  - RHABDOMYOLYSIS [None]
  - RENAL FAILURE [None]
